FAERS Safety Report 18389702 (Version 1)
Quarter: 2020Q4

REPORT INFORMATION
  Report Type: Report from Study
  Country: GB (occurrence: GB)
  Receive Date: 20201015
  Receipt Date: 20201015
  Transmission Date: 20210114
  Serious: Yes (Hospitalization)
  Sender: FDA-Public Use
  Company Number: GB-MYLANLABS-2020M1086653

PATIENT
  Age: 52 Year
  Sex: Female

DRUGS (35)
  1. TRASTUZUMAB. [Suspect]
     Active Substance: TRASTUZUMAB
     Dosage: 450 MILLIGRAM, Q3W
     Route: 042
     Dates: start: 20151016, end: 20170324
  2. DOCETAXEL. [Suspect]
     Active Substance: DOCETAXEL
     Indication: BREAST CANCER METASTATIC
     Dosage: 132 MILLIGRAM
     Route: 042
     Dates: start: 20150925, end: 20151016
  3. DOCETAXEL. [Suspect]
     Active Substance: DOCETAXEL
     Dosage: 108 MILLIGRAM, Q3W
     Route: 042
     Dates: start: 20151016, end: 20160108
  4. PERTUZUMAB. [Suspect]
     Active Substance: PERTUZUMAB
     Indication: BREAST CANCER METASTATIC
     Dosage: 840 MILLIGRAM, QD
     Route: 042
     Dates: start: 20150924, end: 20150924
  5. MACROGOL COMP [Concomitant]
     Indication: CONSTIPATION
     Dosage: UNK, QD (1 OTHER)
     Route: 048
     Dates: start: 20170706, end: 20190425
  6. HALOPERIDOL. [Concomitant]
     Active Substance: HALOPERIDOL
     Indication: CONSTIPATION
     Dosage: 1.5 MILLIGRAM, BID
     Route: 048
     Dates: start: 20170706, end: 2017
  7. ATEZOLIZUMAB. [Suspect]
     Active Substance: ATEZOLIZUMAB
     Indication: BREAST CANCER METASTATIC
     Dosage: 1200 MILLIGRAM, Q3W
     Route: 042
     Dates: start: 20170510, end: 20180628
  8. GLYCEROL [Concomitant]
     Active Substance: GLYCERIN
     Indication: CONSTIPATION
     Dosage: 4 GRAM
     Route: 054
     Dates: start: 20180511, end: 201805
  9. LACTULOSE. [Concomitant]
     Active Substance: LACTULOSE
     Indication: CONSTIPATION
     Dosage: 10 MILLILITER, BID
     Route: 048
     Dates: start: 20170705, end: 2017
  10. METFORMIN [Concomitant]
     Active Substance: METFORMIN HYDROCHLORIDE
     Dosage: 500 MILLIGRAM, BID
     Route: 048
     Dates: end: 20190425
  11. ONDANSETRON [Concomitant]
     Active Substance: ONDANSETRON
     Indication: CONSTIPATION
     Dosage: 4 MILLIGRAM, BID
     Route: 048
     Dates: start: 20170718, end: 2017
  12. DOCUSATE SODIUM. [Concomitant]
     Active Substance: DOCUSATE SODIUM
     Indication: CONSTIPATION
     Dosage: 200 MILLIGRAM, BID
     Route: 048
     Dates: start: 20170706, end: 2018
  13. DEXAMETHASONE. [Concomitant]
     Active Substance: DEXAMETHASONE
     Dosage: 6 MILLIGRAM
     Route: 048
     Dates: start: 20181030, end: 20190123
  14. DEXAMETHASONE. [Concomitant]
     Active Substance: DEXAMETHASONE
     Dosage: 4 MILLIGRAM, BID
     Route: 048
     Dates: start: 20181023, end: 20181028
  15. LANSOPRAZOLE. [Concomitant]
     Active Substance: LANSOPRAZOLE
     Dosage: 30 MILLIGRAM, QD
     Route: 048
     Dates: end: 2017
  16. DEXAMETHASONE. [Concomitant]
     Active Substance: DEXAMETHASONE
     Dosage: 2 MILLIGRAM
     Route: 048
     Dates: start: 20181228, end: 201901
  17. ZOPICLONE [Concomitant]
     Active Substance: ZOPICLONE
     Indication: INSOMNIA
     Dosage: 3.75 MILLIGRAM, QD
     Route: 048
     Dates: start: 20170812, end: 20170822
  18. GABAPENTIN. [Concomitant]
     Active Substance: GABAPENTIN
     Indication: NEUROPATHY PERIPHERAL
     Dosage: 100 MILLIGRAM, TID
     Route: 048
     Dates: start: 20171219, end: 20190425
  19. TRASTUZUMAB. [Suspect]
     Active Substance: TRASTUZUMAB
     Indication: BREAST CANCER METASTATIC
     Dosage: 600 MILLIGRAM
     Route: 042
     Dates: start: 20150924, end: 20150924
  20. SENNOSIDE B [Concomitant]
     Active Substance: SENNOSIDE B
     Indication: CONSTIPATION
     Dosage: 15 MILLIGRAM, QD
     Route: 048
     Dates: start: 20170706, end: 201707
  21. LEVEMIR [Concomitant]
     Active Substance: INSULIN DETEMIR
     Dosage: UNK, QD (38 U)
     Route: 058
     Dates: end: 20190425
  22. TRASTUZUMAB EMTANSINE [Suspect]
     Active Substance: ADO-TRASTUZUMAB EMTANSINE
     Indication: BREAST CANCER METASTATIC
     Dosage: 260 MILLIGRAM, Q3W
     Route: 042
     Dates: start: 20170510, end: 20170628
  23. INSULINA HUMALOG [Concomitant]
     Dosage: UNK UNK, TID (16 U)
     Route: 058
     Dates: end: 20190425
  24. AMITRIPTYLINE [Concomitant]
     Active Substance: AMITRIPTYLINE
     Indication: NEUROPATHY PERIPHERAL
     Dosage: 10 MILLIGRAM
     Route: 048
     Dates: start: 201608, end: 2017
  25. PERTUZUMAB. [Suspect]
     Active Substance: PERTUZUMAB
     Dosage: 420 MILLIGRAM, Q3W
     Route: 042
     Dates: start: 20151016, end: 20170324
  26. BUDENOFALK [Concomitant]
     Active Substance: BUDESONIDE
     Dosage: 9 MILLIGRAM, QD
     Route: 048
     Dates: start: 20180220, end: 20180320
  27. CITALOPRAM [Concomitant]
     Active Substance: CITALOPRAM HYDROBROMIDE
     Dosage: 20 MILLIGRAM, QD
     Route: 048
     Dates: end: 2017
  28. DOMPERIDONE [Concomitant]
     Active Substance: DOMPERIDONE
     Indication: CONSTIPATION
     Dosage: 10 MILLIGRAM, TID
     Route: 048
     Dates: start: 20170705, end: 20190129
  29. HYOSCINE N-BUTYLBROMIDE [Concomitant]
     Active Substance: BUTYLSCOPOLAMINE
     Dosage: 20 MILLIGRAM, QD
     Route: 048
     Dates: start: 20171219, end: 2018
  30. DULOXETINE. [Concomitant]
     Active Substance: DULOXETINE
     Indication: ANXIETY
     Dosage: 60 MILLIGRAM
     Route: 048
     Dates: start: 20181115, end: 20190425
  31. ANISEED [Concomitant]
     Indication: GASTROOESOPHAGEAL REFLUX DISEASE
     Dosage: 10 MILLILITER
     Route: 048
     Dates: start: 201707, end: 20190425
  32. DIAZEPAM. [Concomitant]
     Active Substance: DIAZEPAM
     Indication: ANXIETY
     Dosage: UNK, TID
     Route: 048
     Dates: start: 20180515, end: 20190425
  33. OMEPRAZOLE. [Concomitant]
     Active Substance: OMEPRAZOLE
     Indication: CONSTIPATION
     Dosage: 20 MILLIGRAM, BID
     Route: 048
     Dates: start: 20170710, end: 20190425
  34. RANITIDINE. [Concomitant]
     Active Substance: RANITIDINE
     Indication: CONSTIPATION
     Dosage: 150 MILLIGRAM, BID
     Route: 048
     Dates: start: 20170706, end: 2018
  35. DEXAMETHASONE. [Concomitant]
     Active Substance: DEXAMETHASONE
     Dosage: 4 MILLIGRAM, QD
     Route: 048
     Dates: start: 20181030, end: 20181113

REACTIONS (1)
  - Bundle branch block left [Recovered/Resolved]

NARRATIVE: CASE EVENT DATE: 20170619
